FAERS Safety Report 19620116 (Version 1)
Quarter: 2021Q3

REPORT INFORMATION
  Report Type: Spontaneous
  Country: US (occurrence: US)
  Receive Date: 20210727
  Receipt Date: 20210727
  Transmission Date: 20211014
  Serious: Yes (Death)
  Sender: FDA-Public Use
  Company Number: None

PATIENT
  Age: 70 Year
  Sex: Male
  Weight: 75 kg

DRUGS (1)
  1. YESCARTA [Suspect]
     Active Substance: AXICABTAGENE CILOLEUCEL
     Indication: B-CELL LYMPHOMA
     Dates: start: 20210628, end: 20210628

REACTIONS (5)
  - Neurotoxicity [None]
  - Pleural effusion [None]
  - Mental status changes [None]
  - Febrile neutropenia [None]
  - Blood creatinine increased [None]

NARRATIVE: CASE EVENT DATE: 20210720
